FAERS Safety Report 5596016-2 (Version None)
Quarter: 2008Q1

REPORT INFORMATION
  Report Type: 
  Country: None (occurrence: None)
  Receive Date: 20080118
  Receipt Date: 20070430
  Transmission Date: 20080703
  Serious: Yes (Death)
  Sender: FDA-Public Use
  Company Number: US-ASTRAZENECA-2006UW24979

PATIENT
  Age: 20379 Day
  Sex: Male

DRUGS (1)
  1. SEROQUEL [Suspect]
     Indication: ADJUSTMENT DISORDER
     Dosage: 12.5 TO 25 MG
     Route: 048
     Dates: end: 20050518

REACTIONS (3)
  - CHRONIC OBSTRUCTIVE PULMONARY DISEASE [None]
  - HEPATIC CIRRHOSIS [None]
  - TYPE 2 DIABETES MELLITUS [None]
